FAERS Safety Report 21135847 (Version 4)
Quarter: 2025Q4

REPORT INFORMATION
  Report Type: Report from Study
  Country: TW (occurrence: TW)
  Receive Date: 20220727
  Receipt Date: 20251203
  Transmission Date: 20260117
  Serious: Yes (Hospitalization)
  Sender: TAKEDA
  Company Number: TW-TAKEDA-2022TUS047143

PATIENT
  Age: 46 Year
  Sex: Male

DRUGS (4)
  1. ADYNOVATE [Suspect]
     Active Substance: ANTIHEMOPHILIC FACTOR, HUMAN RECOMBINANT
     Indication: Factor VIII deficiency
     Dosage: 4000 INTERNATIONAL UNIT, Q2WEEKS
     Dates: start: 20180701, end: 202207
  2. ADYNOVATE [Suspect]
     Active Substance: ANTIHEMOPHILIC FACTOR, HUMAN RECOMBINANT
     Dosage: 4000 INTERNATIONAL UNIT, 2/WEEK
     Dates: end: 202207
  3. ADYNOVATE [Suspect]
     Active Substance: ANTIHEMOPHILIC FACTOR, HUMAN RECOMBINANT
     Dosage: 3000 INTERNATIONAL UNIT
  4. ADYNOVATE [Suspect]
     Active Substance: ANTIHEMOPHILIC FACTOR, HUMAN RECOMBINANT
     Dosage: 4000 INTERNATIONAL UNIT, 2/WEEK

REACTIONS (9)
  - Synovial cyst [Not Recovered/Not Resolved]
  - Loss of personal independence in daily activities [Recovered/Resolved]
  - Nerve compression [Recovered/Resolved]
  - Sleep disorder [Recovered/Resolved]
  - Joint swelling [Not Recovered/Not Resolved]
  - Post procedural swelling [Unknown]
  - Joint injury [Recovering/Resolving]
  - Wound complication [Unknown]
  - Wound abscess [Unknown]

NARRATIVE: CASE EVENT DATE: 20220708
